FAERS Safety Report 12634167 (Version 1)
Quarter: 2016Q3

REPORT INFORMATION
  Report Type: Spontaneous
  Country: US (occurrence: US)
  Receive Date: 20160809
  Receipt Date: 20160809
  Transmission Date: 20161109
  Serious: Yes (Other)
  Sender: FDA-Public Use
  Company Number: US-GLAXOSMITHKLINE-US2016GSK113367

PATIENT
  Sex: Male

DRUGS (2)
  1. COREG CR [Suspect]
     Active Substance: CARVEDILOL PHOSPHATE
     Indication: PRODUCT USED FOR UNKNOWN INDICATION
     Dosage: 10 MG, UNK
  2. COREG CR [Suspect]
     Active Substance: CARVEDILOL PHOSPHATE
     Dosage: 20 MG, UNK

REACTIONS (1)
  - Cardiac operation [Unknown]
